FAERS Safety Report 13424258 (Version 2)
Quarter: 2017Q2

REPORT INFORMATION
  Report Type: Spontaneous
  Country: DE (occurrence: DE)
  Receive Date: 20170410
  Receipt Date: 20170616
  Transmission Date: 20170830
  Serious: Yes (Other)
  Sender: FDA-Public Use
  Company Number: DE-PFIZER INC-2017146393

PATIENT
  Sex: Male

DRUGS (5)
  1. VENLAFAXINE HCL [Suspect]
     Active Substance: VENLAFAXINE HYDROCHLORIDE
     Dosage: 75 MG, DAILY
     Route: 064
  2. QUETIAPINE FUMARATE. [Suspect]
     Active Substance: QUETIAPINE FUMARATE
     Indication: DEPRESSION
     Dosage: 100 MG, DAILY, 1 TRIMESTER 0. - 39.5. GESTATIONAL WEEK
     Route: 064
     Dates: start: 20151112, end: 20160816
  3. VENLAFAXINE HCL [Suspect]
     Active Substance: VENLAFAXINE HYDROCHLORIDE
     Indication: DEPRESSION
     Dosage: 225 MG, DAILY,TRIMESTER 0. - 39.5. GESTATIONAL WEEK
     Route: 064
     Dates: start: 20151112, end: 20160816
  4. QUETIAPINE FUMARATE. [Suspect]
     Active Substance: QUETIAPINE FUMARATE
     Dosage: 25 MG, DAILY
     Route: 064
  5. FOLSAEURE ABZ [Concomitant]
     Indication: PROPHYLAXIS OF NEURAL TUBE DEFECT
     Dosage: 5 MG, 1X/DAY 1 TRIMESTER, 5. - 39.5. GESTATIONAL WEEK
     Route: 064

REACTIONS (5)
  - Maternal exposure during pregnancy [Recovered/Resolved]
  - Congenital choroid plexus cyst [Unknown]
  - Drug withdrawal syndrome neonatal [Recovered/Resolved]
  - Bradycardia neonatal [Recovered/Resolved]
  - Hypertonia neonatal [Recovering/Resolving]

NARRATIVE: CASE EVENT DATE: 20160816
